FAERS Safety Report 6455563-1 (Version None)
Quarter: 2009Q4

REPORT INFORMATION
  Report Type: 
  Country: None (occurrence: None)
  Receive Date: 20091125
  Receipt Date: 20090928
  Transmission Date: 20100525
  Serious: No
  Sender: FDA-Public Use
  Company Number: US-ABBOTT-09P-163-0599992-00

PATIENT
  Sex: Female
  Weight: 68.1 kg

DRUGS (6)
  1. SIMCOR [Suspect]
     Indication: BLOOD CHOLESTEROL INCREASED
     Dosage: 100/20 DAILY
     Route: 048
     Dates: start: 20090501
  2. DILANTIN [Concomitant]
     Indication: CONVULSION
     Route: 048
  3. MICARDIS HCT [Concomitant]
     Indication: HYPERTENSION
     Dosage: 80/12.5 DAILY
     Route: 048
  4. AMLODIPINE BESYLATE [Concomitant]
     Indication: DRUG USE FOR UNKNOWN INDICATION
     Route: 048
  5. CLONAZEPAM [Concomitant]
     Indication: DRUG USE FOR UNKNOWN INDICATION
     Dosage: AT BEDTIME
     Route: 048
  6. FLUOXETINE [Concomitant]
     Indication: DRUG USE FOR UNKNOWN INDICATION
     Dosage: BID
     Route: 048

REACTIONS (4)
  - ERYTHEMA [None]
  - PAIN [None]
  - PRURITUS [None]
  - SKIN BURNING SENSATION [None]
